FAERS Safety Report 6545847-0 (Version None)
Quarter: 2010Q1

REPORT INFORMATION
  Report Type: 
  Country: None (occurrence: None)
  Receive Date: 20100121
  Receipt Date: 20100111
  Transmission Date: 20100710
  Serious: Yes (Hospitalization)
  Sender: FDA-Public Use
  Company Number: PHHY2010BE02545

PATIENT
  Age: 71 Year
  Sex: Male

DRUGS (12)
  1. TASIGNA [Suspect]
     Indication: GASTROINTESTINAL STROMAL TUMOUR
     Dosage: 800 MG DAILY
     Dates: start: 20090401
  2. TASIGNA [Suspect]
     Dosage: UNK
     Dates: start: 20090911
  3. ZANTAC [Concomitant]
     Dosage: 300 MG, UNK
  4. NIFEDIPINE [Concomitant]
     Dosage: 10 MG, UNK
  5. ELTHYRONE [Concomitant]
     Dosage: 75 MG, UNK
  6. ASAFLOW [Concomitant]
     Dosage: 80 MG, UNK
  7. CORUNO [Concomitant]
     Dosage: 16 MG, UNK
  8. AMLOR [Concomitant]
     Dosage: 5 MG, UNK
  9. EMCONCOR [Concomitant]
     Dosage: 5 MG, UNK
  10. PLAVIX [Concomitant]
     Dosage: 75 MG, UNK
  11. ZESTRIL [Concomitant]
     Dosage: 20 MG, UNK
  12. ZOCOR [Concomitant]
     Dosage: 20 MG, UNK

REACTIONS (2)
  - GOUT [None]
  - MYOCARDIAL INFARCTION [None]
